FAERS Safety Report 25920973 (Version 3)
Quarter: 2025Q4

REPORT INFORMATION
  Report Type: Spontaneous
  Country: US (occurrence: US)
  Receive Date: 20251014
  Receipt Date: 20251022
  Transmission Date: 20260117
  Serious: No
  Sender: ABBVIE
  Company Number: US-ABBVIE-6493436

PATIENT
  Sex: Female

DRUGS (1)
  1. RESTASIS [Suspect]
     Active Substance: CYCLOSPORINE
     Indication: Dry eye
     Route: 047

REACTIONS (6)
  - Incorrect dose administered [Unknown]
  - Eye irritation [Recovered/Resolved]
  - Dry eye [Not Recovered/Not Resolved]
  - Cataract [Unknown]
  - Multiple use of single-use product [Unknown]
  - Off label use [Unknown]
